FAERS Safety Report 9901062 (Version 1)
Quarter: 2014Q1

REPORT INFORMATION
  Report Type: Report from Study
  Country: None (occurrence: US)
  Receive Date: 20140217
  Receipt Date: 20140217
  Transmission Date: 20141002
  Serious: Yes (Hospitalization)
  Sender: FDA-Public Use
  Company Number: US-ALEXION-A201400546

PATIENT
  Age: 51 Year
  Sex: Male
  Weight: 113.5 kg

DRUGS (17)
  1. ECULIZUMAB [Suspect]
     Dosage: 1200 MG, UNK
     Dates: start: 20131219, end: 20131219
  2. ECULIZUMAB [Suspect]
     Dosage: 900 MG, UNK
     Dates: start: 20131220, end: 20131220
  3. ECULIZUMAB [Suspect]
     Dosage: 900 MG, UNK
     Dates: start: 20131226, end: 20131226
  4. ECULIZUMAB [Suspect]
     Dosage: 900 MG, UNK
     Dates: start: 20140102, end: 20140102
  5. TACROLIMUS [Concomitant]
     Dates: start: 20131220, end: 20140103
  6. TYLENOL [Concomitant]
     Dates: start: 20140106, end: 20140106
  7. FUROSEMIDE [Concomitant]
     Dates: start: 20140104, end: 20140104
  8. BENADRYL /00647601/ [Concomitant]
     Dates: start: 20140106, end: 20140106
  9. LIDOCAINE [Concomitant]
     Dates: start: 20140102, end: 20140102
  10. CALCIUM GLUCONATE [Concomitant]
     Dates: start: 20140106, end: 20140106
  11. IMMUNE GLOBULIN [Concomitant]
     Dates: start: 20140106, end: 20140106
  12. OXYCODONE [Concomitant]
     Dates: start: 20131229
  13. PIPERACILLIN/TAZOBACTAM [Concomitant]
     Dates: start: 20131231, end: 20140102
  14. FLUCONAZOLE [Concomitant]
     Dates: start: 20131231, end: 20140102
  15. DESMOPRESSIN [Concomitant]
     Dates: start: 20140102
  16. MENOMUNE [Concomitant]
     Dates: start: 20140106, end: 20140106
  17. PANTOPRAZOLE [Concomitant]
     Dates: start: 20140101

REACTIONS (1)
  - Urinary tract infection [Unknown]
